FAERS Safety Report 14647984 (Version 1)
Quarter: 2018Q1

REPORT INFORMATION
  Report Type: Spontaneous
  Country: US (occurrence: US)
  Receive Date: 20180315
  Receipt Date: 20180315
  Transmission Date: 20180509
  Serious: Yes (Hospitalization)
  Sender: FDA-Public Use
  Company Number: None

PATIENT
  Age: 65 Year
  Sex: Female
  Weight: 80 kg

DRUGS (1)
  1. VITAMIN D3 [Suspect]
     Active Substance: CHOLECALCIFEROL
     Indication: VITAMIN D DEFICIENCY
     Route: 048
     Dates: start: 20170721

REACTIONS (11)
  - Dyspnoea exertional [None]
  - Weight increased [None]
  - Cardiomegaly [None]
  - Oedema [None]
  - Hypoxia [None]
  - Electrocardiogram QT prolonged [None]
  - Orthopnoea [None]
  - Respiratory rate increased [None]
  - Electrocardiogram T wave abnormal [None]
  - Ascites [None]
  - Polyuria [None]

NARRATIVE: CASE EVENT DATE: 20180312
